FAERS Safety Report 18468747 (Version 2)
Quarter: 2020Q4

REPORT INFORMATION
  Report Type: Spontaneous
  Country: JP (occurrence: JP)
  Receive Date: 20201105
  Receipt Date: 20201217
  Transmission Date: 20210114
  Serious: Yes (Death, Hospitalization, Disabling, Other)
  Sender: FDA-Public Use
  Company Number: JP-JAZZ-2020-JP-014230

PATIENT
  Age: 61 Year
  Sex: Male

DRUGS (1)
  1. DEFITELIO [Suspect]
     Active Substance: DEFIBROTIDE SODIUM
     Indication: VENOOCCLUSIVE LIVER DISEASE
     Dosage: 25 MILLIGRAM/KILOGRAM DAILY
     Route: 042
     Dates: start: 20200918, end: 20200919

REACTIONS (4)
  - Infection [Fatal]
  - Pulmonary alveolar haemorrhage [Fatal]
  - Small intestinal haemorrhage [Unknown]
  - Hypotension [Fatal]

NARRATIVE: CASE EVENT DATE: 20200919
